FAERS Safety Report 12140247 (Version 1)
Quarter: 2016Q1

REPORT INFORMATION
  Report Type: Spontaneous
  Country: US (occurrence: US)
  Receive Date: 20160303
  Receipt Date: 20160303
  Transmission Date: 20160526
  Serious: Yes (Other)
  Sender: FDA-Public Use
  Company Number: US-PFIZER INC-2016130191

PATIENT
  Age: 74 Year
  Sex: Female
  Weight: 53.52 kg

DRUGS (2)
  1. CELEBREX [Suspect]
     Active Substance: CELECOXIB
     Indication: BACK PAIN
  2. CELEBREX [Suspect]
     Active Substance: CELECOXIB
     Indication: ARTHRITIS
     Dosage: 1X/DAY
     Route: 048
     Dates: start: 20160208, end: 20160224

REACTIONS (12)
  - Stevens-Johnson syndrome [Unknown]
  - Oral pain [Unknown]
  - Scab [Unknown]
  - Ear infection [Unknown]
  - Nasal congestion [Not Recovered/Not Resolved]
  - Oral herpes [Recovered/Resolved with Sequelae]
  - Pain [Unknown]
  - Auricular swelling [Unknown]
  - Musculoskeletal pain [Recovered/Resolved with Sequelae]
  - Intentional product misuse [Unknown]
  - Oropharyngeal pain [Not Recovered/Not Resolved]
  - Burning sensation [Unknown]

NARRATIVE: CASE EVENT DATE: 201602
